FAERS Safety Report 13250923 (Version 2)
Quarter: 2018Q1

REPORT INFORMATION
  Report Type: Spontaneous
  Country: US (occurrence: US)
  Receive Date: 20170220
  Receipt Date: 20180313
  Transmission Date: 20180508
  Serious: No
  Sender: FDA-Public Use
  Company Number: US-TEVA-731547ACC

PATIENT
  Age: 4 Year
  Sex: Male
  Weight: 20.43 kg

DRUGS (1)
  1. AMOXICILLIN. [Suspect]
     Active Substance: AMOXICILLIN
     Indication: LUNG INFECTION
     Dosage: 400 MG/5 ML
     Dates: start: 20161110

REACTIONS (3)
  - Rash pustular [Unknown]
  - Blister [Not Recovered/Not Resolved]
  - Rash macular [Unknown]

NARRATIVE: CASE EVENT DATE: 20161112
